FAERS Safety Report 5311685-X (Version None)
Quarter: 2007Q2

REPORT INFORMATION
  Report Type: 
  Country: None (occurrence: None)
  Receive Date: 20070430
  Receipt Date: 20060321
  Transmission Date: 20071010
  Serious: No
  Sender: FDA-Public Use
  Company Number: 2006UW02155

PATIENT
  Age: 6577 Day
  Sex: Female

DRUGS (4)
  1. ZOMIG-ZMT [Suspect]
     Indication: MIGRAINE
     Route: 048
     Dates: start: 20051208, end: 20051215
  2. ZOMIG-ZMT [Suspect]
     Route: 048
  3. NORTRIPTYLINE HCL [Concomitant]
     Indication: MIGRAINE
     Route: 048
     Dates: start: 20041101, end: 20060103
  4. ORAL CONTRACEPTIVE [Concomitant]
     Indication: CONTRACEPTION
     Route: 048
     Dates: start: 20050501

REACTIONS (3)
  - ASTHENIA [None]
  - SEDATION [None]
  - THROAT IRRITATION [None]
